FAERS Safety Report 21545662 (Version 1)
Quarter: 2022Q4

REPORT INFORMATION
  Report Type: Spontaneous
  Country: US (occurrence: US)
  Receive Date: 20221103
  Receipt Date: 20221103
  Transmission Date: 20230113
  Serious: No
  Sender: FDA-Public Use
  Company Number: US-ABBVIE-4137537

PATIENT
  Age: 42 Year
  Sex: Female

DRUGS (1)
  1. RINVOQ [Suspect]
     Active Substance: UPADACITINIB
     Indication: Dermatitis atopic
     Dosage: STRENGTH : 15 MILLIGRAM
     Route: 048
     Dates: start: 202208

REACTIONS (3)
  - Aspartate aminotransferase increased [Unknown]
  - Low density lipoprotein increased [Unknown]
  - Alanine aminotransferase increased [Unknown]

NARRATIVE: CASE EVENT DATE: 20220901
